FAERS Safety Report 10075526 (Version 2)
Quarter: 2014Q2

REPORT INFORMATION
  Report Type: Spontaneous
  Country: US (occurrence: US)
  Receive Date: 20140414
  Receipt Date: 20140618
  Transmission Date: 20141212
  Serious: Yes (Other)
  Sender: FDA-Public Use
  Company Number: US-JNJFOC-20140403702

PATIENT
  Age: 20 Year
  Sex: Female
  Weight: 58.06 kg

DRUGS (2)
  1. INVEGA SUSTENNA [Suspect]
     Indication: SCHIZOPHRENIA
     Dosage: ON DAY 1
     Route: 030
     Dates: start: 20140318, end: 20140318
  2. INVEGA SUSTENNA [Suspect]
     Indication: SCHIZOPHRENIA
     Dosage: ON DAY 8
     Route: 030
     Dates: start: 20140325, end: 20140325

REACTIONS (31)
  - Homicidal ideation [Recovering/Resolving]
  - Hallucination, auditory [Recovering/Resolving]
  - Delusion [Unknown]
  - Tachycardia [Recovering/Resolving]
  - Galactorrhoea [Recovering/Resolving]
  - Depressed mood [Recovering/Resolving]
  - Dizziness [Recovering/Resolving]
  - Feeling drunk [Recovering/Resolving]
  - Paranoia [Unknown]
  - Depression [Unknown]
  - Hyperprolactinaemia [Unknown]
  - Cough [Unknown]
  - Anxiety [Unknown]
  - Balance disorder [Unknown]
  - Headache [Unknown]
  - Weight increased [Unknown]
  - Stress [Unknown]
  - Fatigue [Unknown]
  - Sinusitis [Unknown]
  - Injection site pain [Unknown]
  - Decreased appetite [Unknown]
  - Crying [Unknown]
  - Weight decreased [Unknown]
  - Sleep disorder [Unknown]
  - Nausea [Unknown]
  - Dysmenorrhoea [Unknown]
  - Nervousness [Unknown]
  - Expired product administered [Unknown]
  - Polymenorrhoea [Unknown]
  - Menorrhagia [Unknown]
  - Urinary tract infection [Unknown]
